FAERS Safety Report 23245232 (Version 1)
Quarter: 2023Q4

REPORT INFORMATION
  Report Type: Spontaneous
  Country: US (occurrence: US)
  Receive Date: 20231130
  Receipt Date: 20231130
  Transmission Date: 20240110
  Serious: No
  Sender: FDA-Public Use
  Company Number: US-ALVOGEN-2023091068

PATIENT
  Age: 67 Year
  Sex: Female

DRUGS (4)
  1. TERIPARATIDE [Suspect]
     Active Substance: TERIPARATIDE
     Indication: Osteoporosis
     Dosage: EXPIRATION DATE: UU-JUN-2024.
  2. HYDROXYCHLOROQUINE [Concomitant]
     Active Substance: HYDROXYCHLOROQUINE
     Indication: Sjogren^s syndrome
     Dates: start: 202209
  3. VITAMIN D [Concomitant]
     Active Substance: VITAMIN D NOS
     Indication: Product used for unknown indication
  4. CALCIUM [Concomitant]
     Active Substance: CALCIUM
     Indication: Product used for unknown indication

REACTIONS (1)
  - Product dose omission issue [Unknown]

NARRATIVE: CASE EVENT DATE: 20230404
